FAERS Safety Report 13701629 (Version 1)
Quarter: 2017Q2

REPORT INFORMATION
  Report Type: Spontaneous
  Country: US (occurrence: US)
  Receive Date: 20170629
  Receipt Date: 20170629
  Transmission Date: 20170830
  Serious: No
  Sender: FDA-Public Use
  Company Number: US-ALLERGAN-1709707US

PATIENT
  Sex: Female

DRUGS (2)
  1. VIBERZI [Suspect]
     Active Substance: ELUXADOLINE
     Indication: INFLAMMATORY BOWEL DISEASE
     Dosage: 100 MG, QD
  2. VIBERZI [Suspect]
     Active Substance: ELUXADOLINE
     Indication: CROHN^S DISEASE

REACTIONS (3)
  - Drug ineffective [Unknown]
  - Product use in unapproved indication [Unknown]
  - Insomnia [Unknown]
